FAERS Safety Report 6384377-6 (Version None)
Quarter: 2009Q4

REPORT INFORMATION
  Report Type: 
  Country: None (occurrence: None)
  Receive Date: 20091001
  Receipt Date: 20090925
  Transmission Date: 20100525
  Serious: Yes (Hospitalization)
  Sender: FDA-Public Use
  Company Number: US-JNJFOC-20090907118

PATIENT
  Sex: Female
  Weight: 39.9 kg

DRUGS (12)
  1. INFLIXIMAB [Suspect]
     Indication: CROHN'S DISEASE
     Route: 042
     Dates: start: 20050125, end: 20051125
  2. HUMIRA [Concomitant]
     Indication: CROHN'S DISEASE
  3. BUDESONIDE [Concomitant]
     Indication: CROHN'S DISEASE
  4. OMEPRAZOLE [Concomitant]
  5. PREDNISONE [Concomitant]
  6. ANTIBIOTICS [Concomitant]
     Indication: INFLAMMATORY BOWEL DISEASE
  7. FOLIC ACID [Concomitant]
  8. METHOTREXATE [Concomitant]
     Indication: CROHN'S DISEASE
  9. MERCAPTOPURINE [Concomitant]
  10. FERROUS SULFATE TAB [Concomitant]
  11. PROBIOTICS [Concomitant]
     Indication: CROHN'S DISEASE
  12. MULTI-VITAMINS [Concomitant]

REACTIONS (2)
  - ANAL FISTULA [None]
  - CROHN'S DISEASE [None]
